FAERS Safety Report 16296810 (Version 1)
Quarter: 2019Q2

REPORT INFORMATION
  Report Type: Report from Study
  Country: None (occurrence: BR)
  Receive Date: 20190510
  Receipt Date: 20190510
  Transmission Date: 20190711
  Serious: Yes (Other)
  Sender: FDA-Public Use
  Company Number: BR-ABBVIE-19K-020-2775461-00

PATIENT
  Sex: Female

DRUGS (1)
  1. HUMIRA [Suspect]
     Active Substance: ADALIMUMAB
     Indication: RHEUMATOID ARTHRITIS
     Route: 058
     Dates: start: 20180727

REACTIONS (6)
  - Fall [Unknown]
  - Spinal disorder [Unknown]
  - Cerebral disorder [Unknown]
  - Wrist fracture [Unknown]
  - Upper limb fracture [Unknown]
  - Gait inability [Unknown]
